FAERS Safety Report 4831692-0 (Version None)
Quarter: 2005Q4

REPORT INFORMATION
  Report Type: 
  Country: None (occurrence: None)
  Receive Date: 20051116
  Receipt Date: 20051109
  Transmission Date: 20060501
  Serious: Yes (Death)
  Sender: FDA-Public Use
  Company Number: 2005-134445-NL

PATIENT
  Age: 62 Year
  Sex: Male

DRUGS (9)
  1. DEXAMETHASONE [Suspect]
     Indication: MULTIPLE MYELOMA
     Route: 048
     Dates: start: 20040412, end: 20040423
  2. BORTEZOMIB [Suspect]
     Indication: MULTIPLE MYELOMA
     Dosage: 1.6 MG
     Route: 042
     Dates: start: 20050412
  3. BORTEZOMIB [Suspect]
     Indication: MULTIPLE MYELOMA
     Dosage: 1.6 MG
     Route: 042
     Dates: start: 20050415
  4. BORTEZOMIB [Suspect]
     Indication: MULTIPLE MYELOMA
     Dosage: 1.6 MG
     Route: 042
     Dates: start: 20050419
  5. BORTEZOMIB [Suspect]
     Indication: MULTIPLE MYELOMA
     Dosage: 1.6 MG
     Route: 042
     Dates: start: 20050422
  6. ACETAMINOPHEN [Concomitant]
  7. NATRIUMBIKARBONAT [Concomitant]
  8. DEXTROPROPOXYPHENE NAPSILATE [Concomitant]
  9. PANTOPRAZOLE SODIUM [Concomitant]

REACTIONS (6)
  - DIVERTICULAR PERFORATION [None]
  - DIVERTICULITIS [None]
  - EMBOLISM [None]
  - HAEMORRHAGE [None]
  - LARGE INTESTINAL ULCER HAEMORRHAGE [None]
  - POST PROCEDURAL COMPLICATION [None]
